FAERS Safety Report 13773649 (Version 1)
Quarter: 2017Q3

REPORT INFORMATION
  Report Type: Spontaneous
  Country: US (occurrence: US)
  Receive Date: 20170720
  Receipt Date: 20170720
  Transmission Date: 20171127
  Serious: Yes (Hospitalization, Other)
  Sender: FDA-Public Use
  Company Number: US-009507513-1707USA005329

PATIENT
  Age: 44 Year
  Sex: Male

DRUGS (2)
  1. STROMECTOL [Suspect]
     Active Substance: IVERMECTIN
     Dosage: 0.2 MG/KG, QD
     Route: 048
  2. STROMECTOL [Suspect]
     Active Substance: IVERMECTIN
     Indication: STRONGYLOIDIASIS
     Dosage: 200 MICROGRAM PER KILOGRAM, UNK (3 DOSES)
     Route: 048

REACTIONS (2)
  - Drug ineffective [Recovered/Resolved]
  - Strongyloidiasis [Recovered/Resolved]
